FAERS Safety Report 4324607-5 (Version None)
Quarter: 2004Q1

REPORT INFORMATION
  Report Type: 
  Country: None (occurrence: None)
  Receive Date: 20040323
  Receipt Date: 20040119
  Transmission Date: 20041129
  Serious: Yes (Life-Threatening, Hospitalization, Disabling)
  Sender: FDA-Public Use
  Company Number: 2004-BP-01825YA

PATIENT
  Age: 70 Year
  Sex: Male

DRUGS (3)
  1. HARNAL (TAMSULOSIN) (NR) [Suspect]
     Indication: BENIGN PROSTATIC HYPERPLASIA
     Dosage: NR (NR, 1 DF AM) PO
     Route: 048
     Dates: start: 20020101, end: 20040105
  2. URSODEOXYCHOLIC ACID (URSODEOXYCHOLIC ACID) (NR) [Concomitant]
  3. LACTULOSE (NR) [Concomitant]

REACTIONS (3)
  - JAUNDICE [None]
  - LIVER DISORDER [None]
  - PYREXIA [None]
